FAERS Safety Report 21036124 (Version 1)
Quarter: 2022Q3

REPORT INFORMATION
  Report Type: Spontaneous
  Country: US (occurrence: US)
  Receive Date: 20220701
  Receipt Date: 20220701
  Transmission Date: 20221026
  Serious: No
  Sender: FDA-Public Use
  Company Number: US-THERAPEUTICSMD-2021TMD02448

PATIENT
  Sex: Female
  Weight: 68.027 kg

DRUGS (3)
  1. IMVEXXY [Suspect]
     Active Substance: ESTRADIOL
     Indication: Genitourinary syndrome of menopause
     Dosage: 10 ?G, 2X/WEEK
     Route: 067
     Dates: start: 202104, end: 202108
  2. IMVEXXY [Suspect]
     Active Substance: ESTRADIOL
     Dosage: 10 ?G, 1X/WEEK
     Route: 067
     Dates: start: 202108
  3. IMVEXXY [Suspect]
     Active Substance: ESTRADIOL
     Indication: Genitourinary syndrome of menopause
     Dosage: 4 ?G, 1X/WEEK
     Route: 067
     Dates: start: 202108

REACTIONS (2)
  - Alopecia [Not Recovered/Not Resolved]
  - Off label use [Not Recovered/Not Resolved]

NARRATIVE: CASE EVENT DATE: 20210101
